FAERS Safety Report 14344950 (Version 14)
Quarter: 2020Q1

REPORT INFORMATION
  Report Type: Report from Study
  Country: JP (occurrence: JP)
  Receive Date: 20180103
  Receipt Date: 20200306
  Transmission Date: 20200409
  Serious: Yes (Death, Hospitalization)
  Sender: FDA-Public Use
  Company Number: JP-ROCHE-2047206

PATIENT
  Age: 69 Year
  Sex: Female
  Weight: 55.7 kg

DRUGS (10)
  1. OBINUTUZUMAB. [Suspect]
     Active Substance: OBINUTUZUMAB
     Indication: NON-HODGKIN^S LYMPHOMA UNSPECIFIED HISTOLOGY INDOLENT
     Dosage: 1000 MILLIGRAMS (MG) INTRAVENOUS (IV) INFUSION WILL BE ADMINISTERED ON DAY 1, 8, AND 15 OF CYCLE 1 A
     Route: 042
     Dates: start: 20121114, end: 20150305
  2. CYCLOPHOSPHAMIDE. [Suspect]
     Active Substance: CYCLOPHOSPHAMIDE
     Indication: NON-HODGKIN^S LYMPHOMA UNSPECIFIED HISTOLOGY INDOLENT
     Dosage: 750 MG/M^2 IV WILL BE ADMINISTERED ON DAY 1 OF EACH CYCLE DURING INDUCTION PERIOD (AS PER PROTOCOL)
     Route: 042
     Dates: start: 20121114
  3. DOXORUBICIN [Suspect]
     Active Substance: DOXORUBICIN
     Indication: NON-HODGKIN^S LYMPHOMA UNSPECIFIED HISTOLOGY INDOLENT
     Dosage: 50 MG/M^2 IV WILL BE ADMINISTERED ON DAY 1 OF EACH CYCLE DURING INDUCTION PERIOD (AS PER PROTOCOL)?L
     Route: 042
     Dates: start: 20121114
  4. HYALURONATE SODIUM [Concomitant]
     Active Substance: HYALURONATE SODIUM
     Indication: DRY EYE
     Route: 065
     Dates: start: 20130105
  5. CDDP [Concomitant]
     Active Substance: CISPLATIN
     Route: 065
     Dates: start: 20180207
  6. PREDNISOLONE. [Suspect]
     Active Substance: PREDNISOLONE
     Indication: NON-HODGKIN^S LYMPHOMA UNSPECIFIED HISTOLOGY INDOLENT
     Dosage: 100 MG ON DAYS 1-5 OF EACH CYCLE DURING INDUCTION PERIOD (AS PER PROTOCOL)?LAST + MOST RECENT DOSE O
     Route: 048
     Dates: start: 20121114
  7. LOXOPROFEN SODIUM HYDRATE [Concomitant]
     Active Substance: LOXOPROFEN SODIUM DIHYDRATE
     Indication: TRIGGER FINGER
  8. VINCRISTINE [Suspect]
     Active Substance: VINCRISTINE
     Indication: NON-HODGKIN^S LYMPHOMA UNSPECIFIED HISTOLOGY INDOLENT
     Dosage: 1.4 MG/M^2 (MAXIMUM 2 MG) IV WILL BE ADMINISTERED ON DAY 1 OF EACH CYCLE DURING INDUCTION PERIOD (AS
     Route: 042
     Dates: start: 20121114
  9. LOXOPROFEN SODIUM HYDRATE [Concomitant]
     Active Substance: LOXOPROFEN SODIUM DIHYDRATE
     Indication: ARTHRALGIA
     Route: 065
     Dates: end: 20190131
  10. ROSUVASTATIN CALCIUM. [Concomitant]
     Active Substance: ROSUVASTATIN CALCIUM
     Indication: HYPERLIPIDAEMIA
     Route: 065
     Dates: end: 20180104

REACTIONS (1)
  - Gastric cancer [Fatal]

NARRATIVE: CASE EVENT DATE: 20171226
